FAERS Safety Report 15055186 (Version 2)
Quarter: 2018Q4

REPORT INFORMATION
  Report Type: Spontaneous
  Country: US (occurrence: US)
  Receive Date: 20180622
  Receipt Date: 20181219
  Transmission Date: 20190204
  Serious: Yes (Disabling)
  Sender: FDA-Public Use
  Company Number: US-OTSUKA-2018_016532

PATIENT
  Sex: Female

DRUGS (2)
  1. ABILIFY [Suspect]
     Active Substance: ARIPIPRAZOLE
     Dosage: 20 MG, QD
     Route: 065
     Dates: end: 2018
  2. ABILIFY [Suspect]
     Active Substance: ARIPIPRAZOLE
     Indication: BIPOLAR DISORDER
     Dosage: 15 MG, QD
     Route: 065
     Dates: start: 2008

REACTIONS (10)
  - Emotional distress [Unknown]
  - Gambling disorder [Not Recovered/Not Resolved]
  - Condition aggravated [Unknown]
  - Disability [Unknown]
  - Anxiety [Unknown]
  - Economic problem [Unknown]
  - Injury [Unknown]
  - Anhedonia [Unknown]
  - Pain [Unknown]
  - Compulsive shopping [Not Recovered/Not Resolved]
